FAERS Safety Report 16791745 (Version 1)
Quarter: 2019Q3

REPORT INFORMATION
  Report Type: Spontaneous
  Country: US (occurrence: US)
  Receive Date: 20190719
  Receipt Date: 20190719
  Transmission Date: 20191005
  Serious: No
  Sender: FDA-Public Use
  Company Number: None

PATIENT
  Age: 34 Year
  Sex: Female

DRUGS (1)
  1. TECFIDERA [Suspect]
     Active Substance: DIMETHYL FUMARATE
     Route: 048
     Dates: start: 201801

REACTIONS (5)
  - Blister [None]
  - Pain [None]
  - Alopecia [None]
  - Herpes zoster [None]
  - Rash macular [None]

NARRATIVE: CASE EVENT DATE: 201903
